FAERS Safety Report 23872493 (Version 1)
Quarter: 2024Q2

REPORT INFORMATION
  Report Type: Spontaneous
  Country: US (occurrence: US)
  Receive Date: 20240520
  Receipt Date: 20240520
  Transmission Date: 20240716
  Serious: No
  Sender: FDA-Public Use
  Company Number: ENDG23-03810

PATIENT
  Age: 79 Year

DRUGS (1)
  1. DEXLANSOPRAZOLE [Suspect]
     Active Substance: DEXLANSOPRAZOLE
     Indication: Gastrooesophageal reflux disease
     Dosage: 60 MG, UNKNOWN(FOR ABOUT A WEEK)
     Route: 065
     Dates: start: 202307

REACTIONS (1)
  - Abnormal faeces [Unknown]

NARRATIVE: CASE EVENT DATE: 20230716
